FAERS Safety Report 6465235-5 (Version None)
Quarter: 2009Q4

REPORT INFORMATION
  Report Type: 
  Country: None (occurrence: None)
  Receive Date: 20091201
  Receipt Date: 20090509
  Transmission Date: 20100525
  Serious: No
  Sender: FDA-Public Use
  Company Number: US-AMGEN-COG346491

PATIENT
  Sex: Female

DRUGS (2)
  1. ENBREL [Suspect]
     Indication: RHEUMATOID ARTHRITIS
     Route: 058
     Dates: start: 20090204
  2. ENBREL [Suspect]
     Indication: JUVENILE ARTHRITIS

REACTIONS (4)
  - FATIGUE [None]
  - PRODUCTIVE COUGH [None]
  - THROAT IRRITATION [None]
  - UPPER RESPIRATORY TRACT CONGESTION [None]
